FAERS Safety Report 5487436-5 (Version None)
Quarter: 2007Q4

REPORT INFORMATION
  Report Type: 
  Country: None (occurrence: None)
  Receive Date: 20071016
  Receipt Date: 20071004
  Transmission Date: 20080405
  Serious: Yes (Hospitalization, Other)
  Sender: FDA-Public Use
  Company Number: US-PFIZER INC-2006149817

PATIENT
  Sex: Female
  Weight: 117.9 kg

DRUGS (13)
  1. CELEBREX [Suspect]
     Indication: PAIN
     Route: 048
  2. BEXTRA [Suspect]
     Indication: PAIN
     Route: 048
     Dates: start: 20020409
  3. VIOXX [Suspect]
     Indication: PAIN
     Route: 048
  4. APAP TAB [Concomitant]
     Indication: PAIN
  5. LOTREL [Concomitant]
     Indication: HYPERTENSION
     Dates: start: 19990625, end: 19991005
  6. AVAPRO [Concomitant]
     Indication: HYPERTENSION
     Dates: start: 20010215
  7. TOPROL-XL [Concomitant]
     Indication: HYPERTENSION
     Dates: start: 20010518, end: 20060216
  8. DEMADEX [Concomitant]
     Indication: OEDEMA PERIPHERAL
     Dates: start: 19990625, end: 20021016
  9. TORSEMIDE [Concomitant]
     Indication: OEDEMA PERIPHERAL
     Dates: start: 20021022
  10. NITROQUICK [Concomitant]
     Indication: ANGINA PECTORIS
     Dates: start: 20001109, end: 20040225
  11. NITROQUICK [Concomitant]
     Indication: HYPERTENSION
  12. ACETYLSALICYLIC ACID [Concomitant]
     Dates: start: 19990101, end: 20060101
  13. ZOCOR [Concomitant]
     Dates: start: 20010607

REACTIONS (2)
  - CEREBROVASCULAR ACCIDENT [None]
  - MYOCARDIAL INFARCTION [None]
